FAERS Safety Report 15870613 (Version 1)
Quarter: 2019Q1

REPORT INFORMATION
  Report Type: Other
  Country: US (occurrence: US)
  Receive Date: 20190125
  Receipt Date: 20190125
  Transmission Date: 20190417
  Serious: No
  Sender: FDA-Public Use
  Company Number: US-ACORDA-ACO_151938_2018

PATIENT
  Sex: Male

DRUGS (2)
  1. AMPYRA [Suspect]
     Active Substance: DALFAMPRIDINE
     Indication: NEUROMYELITIS OPTICA SPECTRUM DISORDER
     Dosage: 10 MG, Q 12 HRS
     Route: 048
  2. NORTHERA [Suspect]
     Active Substance: DROXIDOPA
     Indication: ORTHOSTATIC HYPOTENSION
     Dosage: 300 MG, TID
     Route: 048

REACTIONS (3)
  - Product use in unapproved indication [Unknown]
  - Condition aggravated [Unknown]
  - Gait disturbance [Unknown]
